FAERS Safety Report 19367655 (Version 2)
Quarter: 2021Q2

REPORT INFORMATION
  Report Type: Spontaneous
  Country: US (occurrence: US)
  Receive Date: 20210603
  Receipt Date: 20210624
  Transmission Date: 20210717
  Serious: Yes (Hospitalization, Other)
  Sender: FDA-Public Use
  Company Number: US-PFIZER INC-2021584898

PATIENT
  Age: 45 Year
  Sex: Female

DRUGS (7)
  1. XOSPATA [Suspect]
     Active Substance: GILTERITINIB
     Indication: ACUTE MYELOID LEUKAEMIA
     Dosage: 120 MG, DAILY
     Route: 048
     Dates: start: 20170331
  2. XOSPATA [Suspect]
     Active Substance: GILTERITINIB
     Dosage: 80 MG, 1X/DAY
     Route: 048
     Dates: start: 20201201
  3. AZITHROMYCIN ANHYDROUS. [Suspect]
     Active Substance: AZITHROMYCIN ANHYDROUS
     Dosage: UNK
     Route: 048
  4. PROTOPIC [Concomitant]
     Active Substance: TACROLIMUS
     Indication: IMMUNOSUPPRESSION
     Dosage: UNK
     Route: 061
     Dates: start: 20170926, end: 20180503
  5. XOSPATA [Suspect]
     Active Substance: GILTERITINIB
     Dosage: 40 MG, 1X/DAY
     Route: 048
  6. XOSPATA [Suspect]
     Active Substance: GILTERITINIB
     Dosage: 80 MG, 1X/DAY
     Route: 048
  7. XOSPATA [Suspect]
     Active Substance: GILTERITINIB
     Dosage: 20 MG, 2X/DAY
     Route: 048
     Dates: start: 202011

REACTIONS (53)
  - Hypoxia [Unknown]
  - Upper respiratory tract infection [Unknown]
  - Pulmonary hypertension [Unknown]
  - White blood cell count increased [Unknown]
  - Haemoglobin decreased [Unknown]
  - Balance disorder [Not Recovered/Not Resolved]
  - Nausea [Recovered/Resolved]
  - Dysphagia [Unknown]
  - Contusion [Unknown]
  - Vomiting [Unknown]
  - Monocyte count increased [Unknown]
  - Weight increased [Recovering/Resolving]
  - Pyrexia [Recovered/Resolved]
  - Complications of transplant surgery [Unknown]
  - Renal impairment [Unknown]
  - Memory impairment [Not Recovered/Not Resolved]
  - Diarrhoea [Recovered/Resolved]
  - Hypotension [Unknown]
  - Hypertension [Unknown]
  - Streptococcus test positive [Unknown]
  - Bacteraemia [Unknown]
  - Acoustic neuroma [Unknown]
  - Weight increased [Recovered/Resolved]
  - Erythema [Not Recovered/Not Resolved]
  - Cough [Not Recovered/Not Resolved]
  - Dry mouth [Unknown]
  - Rosacea [Not Recovered/Not Resolved]
  - Decreased appetite [Recovered/Resolved]
  - Blood potassium decreased [Unknown]
  - Acute kidney injury [Unknown]
  - Vertigo [Unknown]
  - Dizziness [Recovered/Resolved]
  - Hot flush [Not Recovered/Not Resolved]
  - Pruritus [Unknown]
  - Early satiety [Unknown]
  - Weight decreased [Not Recovered/Not Resolved]
  - Bone marrow failure [Unknown]
  - Thrombosis [Unknown]
  - Metapneumovirus infection [Unknown]
  - Dyspnoea exertional [Recovering/Resolving]
  - Sinus pain [Not Recovered/Not Resolved]
  - Skin burning sensation [Unknown]
  - Serum ferritin increased [Unknown]
  - Pulmonary congestion [Not Recovered/Not Resolved]
  - Weight decreased [Recovered/Resolved]
  - Migraine [Not Recovered/Not Resolved]
  - Liver function test increased [Unknown]
  - Somnolence [Unknown]
  - Dyspnoea [Not Recovered/Not Resolved]
  - Lymphoedema [Unknown]
  - Fatigue [Unknown]
  - Blood creatinine abnormal [Unknown]
  - Breast mass [Unknown]

NARRATIVE: CASE EVENT DATE: 20170525
